FAERS Safety Report 24784638 (Version 1)
Quarter: 2024Q4

REPORT INFORMATION
  Report Type: Report from Study
  Country: CA (occurrence: CA)
  Receive Date: 20241227
  Receipt Date: 20241227
  Transmission Date: 20250115
  Serious: Yes (Hospitalization)
  Sender: HLS THERAPEUTICS
  Company Number: CA-HLS-202403092

PATIENT
  Age: 62 Year
  Sex: Male

DRUGS (3)
  1. CLOZARIL [Suspect]
     Active Substance: CLOZAPINE
     Dosage: 175MG
     Route: 048
  2. CLOZARIL [Suspect]
     Active Substance: CLOZAPINE
     Dosage: 300MG
     Route: 048
     Dates: start: 20241122
  3. CLOZARIL [Suspect]
     Active Substance: CLOZAPINE
     Dosage: 450MG
     Route: 048
     Dates: start: 20121221, end: 20241122

REACTIONS (3)
  - Confusional state [Recovered/Resolved]
  - Disorientation [Recovered/Resolved]
  - Respiratory tract infection [Recovering/Resolving]

NARRATIVE: CASE EVENT DATE: 20241129
